FAERS Safety Report 13176141 (Version 1)
Quarter: 2017Q1

REPORT INFORMATION
  Report Type: Spontaneous
  Country: US (occurrence: US)
  Receive Date: 20170201
  Receipt Date: 20170201
  Transmission Date: 20170428
  Serious: No
  Sender: FDA-Public Use
  Company Number: US-PERRIGO-16US022647

PATIENT
  Age: 49 Year
  Sex: Male
  Weight: 97.51 kg

DRUGS (3)
  1. IBUPROFEN. [Suspect]
     Active Substance: IBUPROFEN
     Indication: PAIN
     Dosage: 200 TO 800 MG, NIGHTLY, PRN
     Route: 048
     Dates: start: 201610, end: 201611
  2. IBUPROFEN. [Suspect]
     Active Substance: IBUPROFEN
     Dosage: 600 MG, SINGLE
     Route: 048
     Dates: start: 20161206, end: 20161206
  3. IBUPROFEN. [Suspect]
     Active Substance: IBUPROFEN
     Dosage: 200 MG, SINGLE
     Route: 048
     Dates: start: 20161205, end: 20161205

REACTIONS (6)
  - Incorrect dose administered [Recovered/Resolved]
  - Discomfort [Recovered/Resolved]
  - Energy increased [Recovered/Resolved]
  - Insomnia [Recovered/Resolved]
  - Restless legs syndrome [Recovered/Resolved]
  - Tremor [Recovered/Resolved]

NARRATIVE: CASE EVENT DATE: 201610
